FAERS Safety Report 8243622-2 (Version None)
Quarter: 2012Q1

REPORT INFORMATION
  Report Type: 
  Country: None (occurrence: None)
  Receive Date: 20120329
  Receipt Date: 20120320
  Transmission Date: 20120608
  Serious: Yes (Other)
  Sender: FDA-Public Use
  Company Number: CA-JNJFOC-20120309941

PATIENT
  Sex: Female
  Weight: 94 kg

DRUGS (3)
  1. NEXIUM [Concomitant]
     Route: 048
  2. REMICADE [Suspect]
     Indication: CROHN'S DISEASE
     Route: 042
     Dates: start: 20090902
  3. ASACOL [Concomitant]
     Route: 048

REACTIONS (1)
  - ANAL FISTULA [None]
